FAERS Safety Report 7434975-3 (Version None)
Quarter: 2011Q2

REPORT INFORMATION
  Report Type: 
  Country: None (occurrence: None)
  Receive Date: 20110425
  Receipt Date: 20110422
  Transmission Date: 20111010
  Serious: Yes (Hospitalization)
  Sender: FDA-Public Use
  Company Number: CN-ROCHE-770801

PATIENT
  Age: 61 Year
  Sex: Female
  Weight: 70 kg

DRUGS (2)
  1. PROGRAF [Concomitant]
     Indication: RENAL TRANSPLANT
     Dosage: MANUFACTURER: ASTELLAS
     Route: 048
     Dates: start: 20080429
  2. CELLCEPT [Suspect]
     Indication: RENAL TRANSPLANT
     Route: 048
     Dates: start: 20080429

REACTIONS (3)
  - ALPHA 1 FOETOPROTEIN INCREASED [None]
  - VOMITING [None]
  - FATIGUE [None]
